FAERS Safety Report 7315952-X (Version None)
Quarter: 2011Q1

REPORT INFORMATION
  Report Type: 
  Country: None (occurrence: None)
  Receive Date: 20110214
  Receipt Date: 20110202
  Transmission Date: 20110831
  Serious: Yes (Hospitalization)
  Sender: FDA-Public Use
  Company Number: 026837

PATIENT
  Sex: Male

DRUGS (2)
  1. RINDERON /00008501/ [Concomitant]
  2. XYZAL [Suspect]
     Indication: ECZEMA
     Dosage: (5 MG ORAL)
     Route: 048
     Dates: start: 20110101

REACTIONS (2)
  - MYALGIA [None]
  - OEDEMA PERIPHERAL [None]
